FAERS Safety Report 23352960 (Version 1)
Quarter: 2023Q4

REPORT INFORMATION
  Report Type: Report from Study
  Country: DE (occurrence: DE)
  Receive Date: 20231230
  Receipt Date: 20231230
  Transmission Date: 20240110
  Serious: Yes (Other)
  Sender: FDA-Public Use
  Company Number: DE-AUROBINDO-AUR-APL-2017-47469

PATIENT
  Age: 28 Year
  Sex: Male

DRUGS (7)
  1. EFAVIRENZ [Suspect]
     Active Substance: EFAVIRENZ
     Indication: Product used for unknown indication
     Dosage: UNK
     Route: 065
  2. LAMIVUDINE [Suspect]
     Active Substance: LAMIVUDINE
     Indication: Product used for unknown indication
     Dosage: UNK
     Route: 065
  3. NEVIRAPINE [Suspect]
     Active Substance: NEVIRAPINE
     Indication: Product used for unknown indication
     Dosage: UNK
     Route: 065
  4. EMTRICITABINE [Suspect]
     Active Substance: EMTRICITABINE
     Indication: Product used for unknown indication
     Dosage: UNK
     Route: 065
  5. ETRAVIRINE [Suspect]
     Active Substance: ETRAVIRINE
     Indication: Product used for unknown indication
     Dosage: UNK
     Route: 065
  6. RILPIVIRINE [Suspect]
     Active Substance: RILPIVIRINE
     Indication: Product used for unknown indication
     Dosage: UNK
     Route: 065
  7. STAVUDINE [Suspect]
     Active Substance: STAVUDINE
     Indication: Product used for unknown indication
     Dosage: UNK
     Route: 065

REACTIONS (3)
  - Drug resistance [Unknown]
  - Viral mutation identified [Unknown]
  - Gene mutation [Unknown]
